FAERS Safety Report 12418933 (Version 1)
Quarter: 2016Q2

REPORT INFORMATION
  Report Type: Spontaneous
  Country: US (occurrence: US)
  Receive Date: 20160531
  Receipt Date: 20160531
  Transmission Date: 20160815
  Serious: No
  Sender: FDA-Public Use
  Company Number: US-BAYER-2016-098673

PATIENT
  Age: 39 Year
  Sex: Female
  Weight: 81.63 kg

DRUGS (1)
  1. MIRALAX [Suspect]
     Active Substance: POLYETHYLENE GLYCOL 3350
     Indication: COLONOSCOPY
     Dosage: MIRALAX WITH EITHER 64OZ OR A GALLON OF WATER AND DRANK DURING THE DAY
     Route: 048

REACTIONS (2)
  - Off label use [None]
  - Wrong technique in product usage process [None]
